FAERS Safety Report 24332671 (Version 1)
Quarter: 2024Q3

REPORT INFORMATION
  Report Type: Spontaneous
  Country: CN (occurrence: CN)
  Receive Date: 20240918
  Receipt Date: 20240918
  Transmission Date: 20241017
  Serious: Yes (Hospitalization, Other)
  Sender: CHEPLAPHARM
  Company Number: CN-CHEPLA-2024011754

PATIENT
  Age: 56 Year
  Sex: Female

DRUGS (3)
  1. CAPECITABINE [Suspect]
     Active Substance: CAPECITABINE
     Indication: Gastric cancer stage IV
     Dosage: APPROVAL NO. GYZZ H20073024; BID?DAILY DOSE: 2 GRAM
     Route: 048
     Dates: start: 20240731, end: 20240813
  2. OXALIPLATIN [Suspect]
     Active Substance: OXALIPLATIN
     Indication: Gastric cancer stage IV
     Dosage: APPROVAL NO. GYZZ H20213312; ROA: INTRAVENOUS INFUSION?DAILY DOSE: 100 MILLIGRAM
     Route: 042
     Dates: start: 20240731, end: 20240813
  3. BEVACIZUMAB [Suspect]
     Active Substance: BEVACIZUMAB
     Indication: Gastric cancer stage IV
     Dosage: APPROVAL NO. GYZZ S20190040; ROA: INTRAVENOUS INFUSION?DAILY DOSE: 300 MILLIGRAM
     Route: 042
     Dates: start: 20240731, end: 20240813

REACTIONS (6)
  - Hypoxia [Recovering/Resolving]
  - Tachypnoea [Recovering/Resolving]
  - Chest discomfort [Recovering/Resolving]
  - Palpitations [Recovering/Resolving]
  - Respiratory acidosis [Recovering/Resolving]
  - Hyperhidrosis [Recovering/Resolving]

NARRATIVE: CASE EVENT DATE: 20240815
